FAERS Safety Report 18716656 (Version 4)
Quarter: 2021Q1

REPORT INFORMATION
  Report Type: Report from Study
  Country: US (occurrence: US)
  Receive Date: 20210108
  Receipt Date: 20210319
  Transmission Date: 20210419
  Serious: Yes (Other)
  Sender: FDA-Public Use
  Company Number: US-EMD SERONO-9040845

PATIENT
  Age: 49 Year
  Sex: Female

DRUGS (2)
  1. REBIF [Suspect]
     Active Substance: INTERFERON BETA-1A
     Indication: MULTIPLE SCLEROSIS
     Route: 058
     Dates: start: 20180620, end: 20210105
  2. REBIF [Suspect]
     Active Substance: INTERFERON BETA-1A
     Route: 058
     Dates: start: 20210210

REACTIONS (11)
  - Condition aggravated [Unknown]
  - Systemic lupus erythematosus [Unknown]
  - Lip swelling [Not Recovered/Not Resolved]
  - Joint stiffness [Unknown]
  - Dry skin [Unknown]
  - Swelling face [Not Recovered/Not Resolved]
  - Hypovitaminosis [Unknown]
  - Musculoskeletal disorder [Unknown]
  - Hypokinesia [Unknown]
  - Treatment noncompliance [Unknown]
  - Musculoskeletal stiffness [Unknown]

NARRATIVE: CASE EVENT DATE: 2018
